FAERS Safety Report 6214959-3 (Version None)
Quarter: 2009Q2

REPORT INFORMATION
  Report Type: 
  Country: None (occurrence: None)
  Receive Date: 20090604
  Receipt Date: 20090527
  Transmission Date: 20091009
  Serious: Yes (Other)
  Sender: FDA-Public Use
  Company Number: US-MERCK-0905USA03900

PATIENT
  Age: 47 Year
  Sex: Female

DRUGS (5)
  1. CANCIDAS [Suspect]
     Indication: BREAST CANCER
     Route: 042
     Dates: start: 20081001, end: 20090101
  2. CANCIDAS [Suspect]
     Indication: FUNGAL INFECTION
     Route: 042
     Dates: start: 20081001, end: 20090101
  3. ALOXI [Concomitant]
     Route: 065
  4. DEXAMETHASONE [Concomitant]
     Route: 065
  5. TAXOL [Suspect]
     Route: 065
     Dates: start: 20080201

REACTIONS (4)
  - FUNGAL INFECTION [None]
  - LYMPHADENOPATHY [None]
  - RIB FRACTURE [None]
  - THERAPEUTIC RESPONSE UNEXPECTED [None]
